FAERS Safety Report 7034284-0 (Version None)
Quarter: 2010Q4

REPORT INFORMATION
  Report Type: 
  Country: None (occurrence: None)
  Receive Date: 20101008
  Receipt Date: 20101004
  Transmission Date: 20110411
  Serious: Yes (Other)
  Sender: FDA-Public Use
  Company Number: US-BAYER-201014968NA

PATIENT
  Age: 58 Year
  Sex: Female

DRUGS (12)
  1. BETASERON [Suspect]
     Indication: RELAPSING-REMITTING MULTIPLE SCLEROSIS
     Dosage: TOTAL DAILY DOSE: 2 MIU
     Route: 058
     Dates: start: 20100112
  2. BETASERON [Suspect]
     Dosage: TOTAL DAILY DOSE: 4 MIU
     Route: 058
     Dates: start: 20100202
  3. BETASERON [Suspect]
     Dosage: TOTAL DAILY DOSE: 6 MIU
     Route: 058
     Dates: start: 20100211
  4. BETASERON [Suspect]
     Dosage: TOTAL DAILY DOSE: 4.5 MIU
     Route: 058
     Dates: start: 20100101, end: 20100101
  5. BETASERON [Suspect]
     Dosage: TOTAL DAILY DOSE: 8 MIU
     Route: 058
     Dates: start: 20100101, end: 20101003
  6. PROVIGIL [Concomitant]
     Dates: start: 20100115
  7. RITALIN [Concomitant]
     Dates: end: 20100115
  8. IBUPROFEN [Concomitant]
  9. PREDINISONE [Concomitant]
     Indication: ANGIOEDEMA
  10. ANTIHISTAMINES [Concomitant]
     Indication: ANGIOEDEMA
     Dates: end: 20091201
  11. BACLOFEN [Concomitant]
  12. TYLENOL PM [Concomitant]

REACTIONS (15)
  - ANGIOEDEMA [None]
  - DYSPHAGIA [None]
  - DYSPHONIA [None]
  - HEADACHE [None]
  - INJECTION SITE ERYTHEMA [None]
  - INJECTION SITE INFLAMMATION [None]
  - INJECTION SITE PRURITUS [None]
  - NAUSEA [None]
  - PAIN IN EXTREMITY [None]
  - PRURITUS [None]
  - PRURITUS GENERALISED [None]
  - RASH [None]
  - SOMNOLENCE [None]
  - THROAT TIGHTNESS [None]
  - URTICARIA [None]
